FAERS Safety Report 13366871 (Version 1)
Quarter: 2017Q1

REPORT INFORMATION
  Report Type: Spontaneous
  Country: US (occurrence: US)
  Receive Date: 20170323
  Receipt Date: 20170323
  Transmission Date: 20170429
  Serious: Yes (Death)
  Sender: FDA-Public Use
  Company Number: None

PATIENT
  Age: 68 Year
  Sex: Male
  Weight: 88.2 kg

DRUGS (1)
  1. PROFILNINE [Suspect]
     Active Substance: FACTOR IX COMPLEX
     Indication: INTERNATIONAL NORMALISED RATIO INCREASED
     Dosage: ?          OTHER FREQUENCY:ONCE;?
     Route: 040

REACTIONS (5)
  - Pulseless electrical activity [None]
  - Cardiac arrest [None]
  - Sepsis [None]
  - Asthenia [None]
  - Confusional state [None]

NARRATIVE: CASE EVENT DATE: 20170102
